FAERS Safety Report 4990277-6 (Version None)
Quarter: 2006Q2

REPORT INFORMATION
  Report Type: 
  Country: None (occurrence: None)
  Receive Date: 20060503
  Receipt Date: 20060424
  Transmission Date: 20061013
  Serious: Yes (Other)
  Sender: FDA-Public Use
  Company Number: GB-GLAXOSMITHKLINE-B0421147A

PATIENT
  Sex: Female

DRUGS (2)
  1. MALARONE [Suspect]
     Indication: DRUG USE FOR UNKNOWN INDICATION
     Dosage: 1TAB PER DAY
     Route: 048
     Dates: end: 20060119
  2. NO CONCURRENT MEDICATION [Concomitant]

REACTIONS (6)
  - HALLUCINATION [None]
  - INSOMNIA [None]
  - RASH [None]
  - RASH PRURITIC [None]
  - URTICARIA [None]
  - WEIGHT DECREASED [None]
